FAERS Safety Report 4611903-7 (Version None)
Quarter: 2005Q2

REPORT INFORMATION
  Report Type: 
  Country: None (occurrence: None)
  Receive Date: 20050308
  Receipt Date: 20041220
  Transmission Date: 20051028
  Serious: Yes (Hospitalization)
  Sender: FDA-Public Use
  Company Number: 2004UW26011

PATIENT
  Age: 46 Year
  Sex: Male

DRUGS (1)
  1. CRESTOR [Suspect]
     Dosage: 20 MG PO
     Route: 048

REACTIONS (3)
  - ABDOMINAL PAIN [None]
  - HAEMATURIA [None]
  - INFLUENZA LIKE ILLNESS [None]
